FAERS Safety Report 7760534-9 (Version None)
Quarter: 2011Q3

REPORT INFORMATION
  Report Type: 
  Country: None (occurrence: None)
  Receive Date: 20110919
  Receipt Date: 20110909
  Transmission Date: 20111222
  Serious: Yes (Other)
  Sender: FDA-Public Use
  Company Number: BR-ELI_LILLY_AND_COMPANY-BR201109002751

PATIENT
  Age: 52 Year
  Sex: Male

DRUGS (2)
  1. HUMULIN R [Suspect]
     Dosage: UNK, UNKNOWN
     Route: 065
     Dates: start: 20080101
  2. HUMULIN N [Suspect]
     Dosage: UNK, UNKNOWN
     Route: 065
     Dates: start: 19960101

REACTIONS (3)
  - VASCULAR GRAFT [None]
  - BLOOD GLUCOSE INCREASED [None]
  - CATARACT [None]
